FAERS Safety Report 8978309 (Version 1)
Quarter: 2012Q4

REPORT INFORMATION
  Report Type: Spontaneous
  Country: GB (occurrence: None)
  Receive Date: 20120925
  Receipt Date: 20120925
  Transmission Date: 20130627
  Serious: Yes (Death)
  Sender: FDA-Public Use
  Company Number: 218865

PATIENT
  Age: 91 Year
  Sex: Female

DRUGS (2)
  1. INNOHEP [Suspect]
     Indication: DRUG USE FOR UNKNOWN INDICATION
  2. FLUCLOXACILLIN (FLUCLOXACILLIN) [Concomitant]

REACTIONS (1)
  - Death [None]
